FAERS Safety Report 10951072 (Version 1)
Quarter: 2015Q1

REPORT INFORMATION
  Report Type: Spontaneous
  Country: US (occurrence: None)
  Receive Date: 20150226
  Receipt Date: 20150226
  Transmission Date: 20150721
  Serious: Yes (Other)
  Sender: FDA-Public Use
  Company Number: PHEH2014US001929

PATIENT
  Age: 55 Year
  Sex: Female

DRUGS (7)
  1. VOMIGO (ONDANSETRON HYDROCHLORIDE) [Concomitant]
  2. VITAMIN B2 (RIBOFLAVIN) [Concomitant]
  3. NAPROXEN (NAPROXEN) [Concomitant]
     Active Substance: NAPROXEN
  4. ELMIRON [Concomitant]
     Active Substance: PENTOSAN POLYSULFATE SODIUM
  5. TEGRETOL [Suspect]
     Active Substance: CARBAMAZEPINE
     Indication: SEIZURE
  6. LANSOPRAZOLE (LANSOPRAZOLE) [Concomitant]
     Active Substance: LANSOPRAZOLE
  7. ESTRADIOL (ESTRADIOL) [Concomitant]

REACTIONS (1)
  - Seizure [None]
